FAERS Safety Report 9541237 (Version 2)
Quarter: 2013Q4

REPORT INFORMATION
  Report Type: Spontaneous
  Country: US (occurrence: US)
  Receive Date: 20130923
  Receipt Date: 20131114
  Transmission Date: 20140711
  Serious: No
  Sender: FDA-Public Use
  Company Number: US-BIOGENIDEC-2013BI088961

PATIENT
  Age: 37 Year
  Sex: Male

DRUGS (1)
  1. TYSABRI [Suspect]
     Indication: MULTIPLE SCLEROSIS
     Route: 042
     Dates: start: 20071121

REACTIONS (5)
  - Gastric infection [Not Recovered/Not Resolved]
  - Respiratory disorder [Recovered/Resolved]
  - Sinus disorder [Recovered/Resolved]
  - Feeling cold [Unknown]
  - Sinusitis [Not Recovered/Not Resolved]
